FAERS Safety Report 10312832 (Version 3)
Quarter: 2020Q2

REPORT INFORMATION
  Report Type: Spontaneous
  Country: FR (occurrence: FR)
  Receive Date: 20140718
  Receipt Date: 20200617
  Transmission Date: 20200713
  Serious: Yes (Hospitalization, Other)
  Sender: FDA-Public Use
  Company Number: FR-SUN PHARMACEUTICAL INDUSTRIES LTD-2014SUN01558

PATIENT
  Age: 69 Year
  Sex: Male

DRUGS (3)
  1. CREON [Concomitant]
     Active Substance: PANCRELIPASE AMYLASE\PANCRELIPASE LIPASE\PANCRELIPASE PROTEASE
     Dosage: 75000 INTERNATIONAL UNIT
     Route: 065
  2. CREON [Concomitant]
     Active Substance: PANCRELIPASE AMYLASE\PANCRELIPASE LIPASE\PANCRELIPASE PROTEASE
     Indication: PANCREATECTOMY
     Dosage: 75000 INTERNATIONAL UNIT, DAILY
     Route: 065
  3. GEMCITABINE. [Suspect]
     Active Substance: GEMCITABINE
     Indication: ADENOCARCINOMA PANCREAS
     Dosage: 1000 MG/M2/WEEK (2ND CYCLE, 3RD INFUSION)
     Route: 041
     Dates: start: 2014

REACTIONS (13)
  - Rhabdomyolysis [Recovered/Resolved]
  - Muscle necrosis [Recovered/Resolved]
  - Pain in extremity [Recovered/Resolved]
  - Angiopathy [Recovered/Resolved]
  - Myopathy [Recovered/Resolved]
  - Muscular weakness [Recovered/Resolved]
  - Erythema [Recovered/Resolved]
  - Muscle disorder [Recovered/Resolved]
  - Muscle oedema [Recovered/Resolved]
  - C-reactive protein increased [Recovered/Resolved]
  - Motor dysfunction [Recovered/Resolved]
  - Myalgia [Recovered/Resolved]
  - Blood creatine phosphokinase increased [Recovered/Resolved]

NARRATIVE: CASE EVENT DATE: 2014
